FAERS Safety Report 11777263 (Version 1)
Quarter: 2015Q4

REPORT INFORMATION
  Report Type: Spontaneous
  Country: US (occurrence: US)
  Receive Date: 20151125
  Receipt Date: 20151125
  Transmission Date: 20160304
  Serious: No
  Sender: FDA-Public Use
  Company Number: US-MALLINCKRODT-T201501213

PATIENT
  Age: 6 Year
  Sex: Female

DRUGS (2)
  1. GABLOFEN [Suspect]
     Active Substance: BACLOFEN
     Indication: MUSCLE SPASTICITY
     Dosage: 55 MCG/DAY
     Route: 037
     Dates: end: 20120119
  2. GABLOFEN [Suspect]
     Active Substance: BACLOFEN
     Dosage: 65.08 MCG/DAY
     Route: 037
     Dates: start: 20120119

REACTIONS (2)
  - Implant site swelling [Unknown]
  - Implant site extravasation [Recovered/Resolved]

NARRATIVE: CASE EVENT DATE: 20120119
